FAERS Safety Report 9278327 (Version 1)
Quarter: 2013Q2

REPORT INFORMATION
  Report Type: Spontaneous
  Country: GB (occurrence: GB)
  Receive Date: 20130508
  Receipt Date: 20130508
  Transmission Date: 20140414
  Serious: Yes (Other)
  Sender: FDA-Public Use
  Company Number: GB-PFIZER INC-2013136556

PATIENT
  Age: 41 Year
  Sex: Female
  Weight: 58 kg

DRUGS (2)
  1. DEPO-PROVERA [Suspect]
     Dosage: UNK
     Route: 051
     Dates: start: 20120528, end: 20120528
  2. IMPLANON [Concomitant]

REACTIONS (3)
  - Thrombophlebitis [Recovered/Resolved with Sequelae]
  - Contusion [Unknown]
  - Scar [Not Recovered/Not Resolved]
